FAERS Safety Report 5398805-6 (Version None)
Quarter: 2007Q3

REPORT INFORMATION
  Report Type: 
  Country: None (occurrence: None)
  Receive Date: 20070725
  Receipt Date: 20070725
  Transmission Date: 20080115
  Serious: Yes (Other)
  Sender: FDA-Public Use
  Company Number: None

PATIENT
  Sex: Female

DRUGS (2)
  1. ESTRADIOL [Suspect]
     Indication: MENOPAUSE
     Dosage: 0.06MG Q WEEK SKIN
     Dates: start: 20060619
  2. ESTRADIOL [Suspect]
     Indication: OSTEOPOROSIS
     Dosage: 0.06MG Q WEEK SKIN
     Dates: start: 20060619

REACTIONS (1)
  - SKIN REACTION [None]
